FAERS Safety Report 9433087 (Version 1)
Quarter: 2013Q3

REPORT INFORMATION
  Report Type: Spontaneous
  Country: FR (occurrence: FR)
  Receive Date: 20130731
  Receipt Date: 20130731
  Transmission Date: 20140515
  Serious: Yes (Life-Threatening, Hospitalization)
  Sender: FDA-Public Use
  Company Number: FR-ACTAVIS-2013-12904

PATIENT
  Age: 70 Year
  Sex: Female
  Weight: 65 kg

DRUGS (5)
  1. METFORMIN HYDROCHLORIDE (UNKNOWN) [Suspect]
     Indication: TYPE 2 DIABETES MELLITUS
     Dosage: 3000 MG, DAILY
     Route: 065
  2. INDAPAMIDE (UNKNOWN) [Suspect]
     Indication: HYPERTENSION
     Dosage: 2.5 MG, DAILY
     Route: 065
  3. KETOPROFEN (UNKNOWN) [Suspect]
     Indication: ANALGESIC THERAPY
     Dosage: 100 MG, TID
     Route: 042
  4. ACETAMINOPHEN [Concomitant]
     Indication: ANALGESIC THERAPY
     Dosage: 1000 MG, QID
     Route: 042
  5. MORPHINE [Concomitant]
     Indication: ANALGESIC THERAPY
     Dosage: 10 MG, QID
     Route: 058

REACTIONS (3)
  - Lactic acidosis [Recovering/Resolving]
  - Renal failure acute [Recovering/Resolving]
  - Hypoglycaemia [Recovering/Resolving]
